FAERS Safety Report 8230191-6 (Version None)
Quarter: 2012Q1

REPORT INFORMATION
  Report Type: 
  Country: None (occurrence: None)
  Receive Date: 20120323
  Receipt Date: 20120319
  Transmission Date: 20120608
  Serious: Yes (Death, Hospitalization, Other)
  Sender: FDA-Public Use
  Company Number: US-SHIRE-ALL1-2012-01508

PATIENT
  Sex: Female

DRUGS (2)
  1. FOSRENOL [Suspect]
     Indication: RENAL FAILURE CHRONIC
     Dosage: 1000 MG, 3X/DAY:TID
     Route: 048
  2. FOSRENOL [Suspect]
     Indication: HYPERPHOSPHATAEMIA

REACTIONS (5)
  - LOSS OF CONSCIOUSNESS [None]
  - RESPIRATORY ARREST [None]
  - PNEUMONIA [None]
  - BLOOD PRESSURE FLUCTUATION [None]
  - CEREBROVASCULAR ACCIDENT [None]
